FAERS Safety Report 5822865-9 (Version None)
Quarter: 2008Q3

REPORT INFORMATION
  Report Type: 
  Country: None (occurrence: None)
  Receive Date: 20080718
  Receipt Date: 20080705
  Transmission Date: 20090109
  Serious: Yes (Other)
  Sender: FDA-Public Use
  Company Number: NL-1166693

PATIENT
  Age: 45 Year

DRUGS (2)
  1. FLUORESCITE (FLUORESCEIN SODIUM) 10% INJECTION LOT# IM0733F SOLUTION F [Suspect]
     Dosage: 2.5 ML
     Route: 040
     Dates: start: 20080530, end: 20080530
  2. CLEMASTINE FUMARATE [Concomitant]

REACTIONS (7)
  - BRADYCARDIA [None]
  - COLD SWEAT [None]
  - LOSS OF CONSCIOUSNESS [None]
  - NAUSEA [None]
  - RESPIRATORY RATE DECREASED [None]
  - SYNCOPE [None]
  - VOMITING [None]
